FAERS Safety Report 15097503 (Version 2)
Quarter: 2018Q3

REPORT INFORMATION
  Report Type: Spontaneous
  Country: JP (occurrence: JP)
  Receive Date: 20180702
  Receipt Date: 20180706
  Transmission Date: 20181010
  Serious: Yes (Other)
  Sender: FDA-Public Use
  Company Number: JP-GLAXOSMITHKLINE-JP2018JPN112945

PATIENT
  Age: 31 Year
  Sex: Female

DRUGS (6)
  1. PREDNISOLONE. [Concomitant]
     Active Substance: PREDNISOLONE
     Dosage: 60 MG, UNK
  2. PREDNISOLONE. [Concomitant]
     Active Substance: PREDNISOLONE
     Dosage: UNK
  3. FLOLAN [Suspect]
     Active Substance: EPOPROSTENOL SODIUM
     Indication: PULMONARY ARTERIAL HYPERTENSION
     Dosage: UNK
     Route: 042
  4. FLOLAN [Suspect]
     Active Substance: EPOPROSTENOL SODIUM
     Dosage: 2.5 NG/KG/MIN
     Route: 042
  5. BETAMETHASONE. [Concomitant]
     Active Substance: BETAMETHASONE
     Dosage: 12 MG, 1D
  6. HEPARINOID [Concomitant]
     Active Substance: CHONDROITIN SULFATE (BOVINE)
     Indication: THROMBOSIS PROPHYLAXIS
     Dosage: UNK

REACTIONS (11)
  - Platelet count decreased [Recovering/Resolving]
  - Haemolytic anaemia [Recovering/Resolving]
  - Pulmonary arterial pressure increased [Recovered/Resolved]
  - Blood pressure systolic decreased [Recovering/Resolving]
  - Systemic lupus erythematosus [Recovering/Resolving]
  - Live birth [Unknown]
  - Condition aggravated [Recovered/Resolved]
  - Pulmonary arterial hypertension [Recovered/Resolved]
  - Leukopenia [Recovering/Resolving]
  - Haematuria [Recovering/Resolving]
  - Exposure during pregnancy [Unknown]
